FAERS Safety Report 4793801-1 (Version None)
Quarter: 2005Q4

REPORT INFORMATION
  Report Type: 
  Country: None (occurrence: None)
  Receive Date: 20051006
  Receipt Date: 20050923
  Transmission Date: 20060501
  Serious: Yes (Hospitalization, Other)
  Sender: FDA-Public Use
  Company Number: KII-2005-0018715

PATIENT
  Age: 58 Year
  Sex: Female

DRUGS (7)
  1. MORPHINE SULFATE [Suspect]
     Indication: DRUG USE FOR UNKNOWN INDICATION
     Dosage: ORAL
     Route: 048
  2. CODEINE (CODEINE) [Suspect]
     Indication: DRUG USE FOR UNKNOWN INDICATION
     Dosage: ORAL
     Route: 048
  3. HYDROCODONE BITARTRATE + ACETAMINOPHEN [Suspect]
     Indication: DRUG USE FOR UNKNOWN INDICATION
  4. ANALGESICS() [Suspect]
     Indication: DRUG USE FOR UNKNOWN INDICATION
     Dosage: ORAL
     Route: 048
  5. LITHIUM(LITHIUM) [Suspect]
     Indication: BIPOLAR DISORDER
     Dosage: ORAL
     Route: 048
  6. CARBAMAZEPINE [Suspect]
     Indication: CONVULSION
     Dosage: ORAL
     Route: 048
  7. BENZODIAZEPINE DERIVATIVES() [Suspect]
     Indication: DRUG USE FOR UNKNOWN INDICATION

REACTIONS (10)
  - ALANINE AMINOTRANSFERASE INCREASED [None]
  - ANTICONVULSANT DRUG LEVEL DECREASED [None]
  - ASPARTATE AMINOTRANSFERASE INCREASED [None]
  - BLOOD PRESSURE DECREASED [None]
  - COMA [None]
  - DRUG TOXICITY [None]
  - LETHARGY [None]
  - RESPIRATORY ACIDOSIS [None]
  - RESPIRATORY DEPRESSION [None]
  - SOMNOLENCE [None]
